FAERS Safety Report 16695183 (Version 1)
Quarter: 2019Q3

REPORT INFORMATION
  Report Type: Spontaneous
  Country: IE (occurrence: IE)
  Receive Date: 20190813
  Receipt Date: 20190813
  Transmission Date: 20191004
  Serious: Yes (Hospitalization)
  Sender: FDA-Public Use
  Company Number: IE-SUN PHARMACEUTICAL INDUSTRIES LTD-2019RR-215884

PATIENT
  Age: 90 Year
  Sex: Female

DRUGS (3)
  1. CLARITHROMYCIN. [Suspect]
     Active Substance: CLARITHROMYCIN
     Indication: LOWER RESPIRATORY TRACT INFECTION
     Dosage: (), UNK
     Route: 048
     Dates: start: 20190531
  2. PAROXETINE (GENERIC) [Concomitant]
     Indication: DEPRESSION
     Dosage: 20 MILLIGRAM, UNK
     Route: 048
     Dates: start: 20190531
  3. STILNOCT [Concomitant]
     Active Substance: ZOLPIDEM TARTRATE
     Indication: INSOMNIA
     Dosage: 5 MILLIGRAM, UNK
     Route: 048
     Dates: start: 20190531

REACTIONS (3)
  - Swollen tongue [Recovered/Resolved]
  - Erythema [Recovered/Resolved]
  - Lip swelling [Recovered/Resolved]

NARRATIVE: CASE EVENT DATE: 20190601
